FAERS Safety Report 23575996 (Version 1)
Quarter: 2024Q1

REPORT INFORMATION
  Report Type: Spontaneous
  Country: CN (occurrence: CN)
  Receive Date: 20240228
  Receipt Date: 20240228
  Transmission Date: 20240409
  Serious: Yes (Other)
  Sender: FDA-Public Use
  Company Number: CN-PFIZER INC-PV202400026194

PATIENT
  Age: 63 Year
  Sex: Female
  Weight: 52 kg

DRUGS (8)
  1. EPIRUBICIN HYDROCHLORIDE [Suspect]
     Active Substance: EPIRUBICIN HYDROCHLORIDE
     Indication: Breast cancer
     Dosage: 130 MG (+ 100 ML STERILE WATER), 1X/DAY
     Route: 042
     Dates: start: 20231205, end: 20231205
  2. EPIRUBICIN HYDROCHLORIDE [Suspect]
     Active Substance: EPIRUBICIN HYDROCHLORIDE
     Dosage: 130 MG (+ 100 ML STERILE WATER), 1X/DAY
     Route: 042
     Dates: start: 20231226, end: 20231226
  3. CYCLOPHOSPHAMIDE [Suspect]
     Active Substance: CYCLOPHOSPHAMIDE
     Indication: Breast cancer
     Dosage: 0.88 G (+50 ML NS 0.9%), 1X/DAY
     Route: 042
     Dates: start: 20231205, end: 20231205
  4. CYCLOPHOSPHAMIDE [Suspect]
     Active Substance: CYCLOPHOSPHAMIDE
     Dosage: 0.88 G (+50 ML NS 0.9%), 1X/DAY
     Route: 042
     Dates: start: 20231226, end: 20231226
  5. SODIUM CHLORIDE [Concomitant]
     Active Substance: SODIUM CHLORIDE
     Indication: Vehicle solution use
     Dosage: 50 ML, 2X/DAY
     Route: 042
     Dates: start: 20231205, end: 20231205
  6. SODIUM CHLORIDE [Concomitant]
     Active Substance: SODIUM CHLORIDE
     Dosage: 50 ML, 2X/DAY
     Route: 042
     Dates: start: 20231226, end: 20231226
  7. STERILE WATER [Concomitant]
     Active Substance: WATER
     Indication: Vehicle solution use
     Dosage: 100 ML, 1X/DAY
     Dates: start: 20231205, end: 20231205
  8. STERILE WATER [Concomitant]
     Active Substance: WATER
     Dosage: 100 ML, 1X/DAY
     Dates: start: 20231226, end: 20231226

REACTIONS (2)
  - Neuropathy peripheral [Recovering/Resolving]
  - Drug eruption [Recovering/Resolving]

NARRATIVE: CASE EVENT DATE: 20231228
